FAERS Safety Report 10998613 (Version 1)
Quarter: 2015Q2

REPORT INFORMATION
  Report Type: Spontaneous
  Country: US (occurrence: US)
  Receive Date: 20150408
  Receipt Date: 20150408
  Transmission Date: 20150821
  Serious: No
  Sender: FDA-Public Use
  Company Number: US-SA-2014SA047159

PATIENT
  Age: 75 Year
  Sex: Male

DRUGS (2)
  1. ALLEGRA [Suspect]
     Active Substance: FEXOFENADINE HYDROCHLORIDE
     Indication: LACRIMATION INCREASED
     Dosage: DOSE: ALLEGRA ALLERGY 24HR
     Route: 065
  2. ALLEGRA [Suspect]
     Active Substance: FEXOFENADINE HYDROCHLORIDE
     Indication: RHINORRHOEA
     Dosage: DOSE: ALLEGRA ALLERGY 24HR
     Route: 065

REACTIONS (3)
  - Dry mouth [Unknown]
  - Expired product administered [Unknown]
  - Extra dose administered [Unknown]
